FAERS Safety Report 5525441-0 (Version None)
Quarter: 2007Q4

REPORT INFORMATION
  Report Type: 
  Country: None (occurrence: None)
  Receive Date: 20071126
  Receipt Date: 20071121
  Transmission Date: 20080405
  Serious: Yes (Other)
  Sender: FDA-Public Use
  Company Number: A0695663A

PATIENT
  Age: 3 Year
  Sex: Female

DRUGS (1)
  1. SCOTT'S EMULSION VITAMIN A + D SUPPLEMENT [Suspect]
     Indication: VITAMIN SUPPLEMENTATION
     Dosage: 10ML PER DAY
     Route: 065
     Dates: start: 20071119

REACTIONS (1)
  - CONVULSION [None]
